FAERS Safety Report 24819604 (Version 1)
Quarter: 2025Q1

REPORT INFORMATION
  Report Type: Report from Study
  Country: US (occurrence: US)
  Receive Date: 20250108
  Receipt Date: 20250108
  Transmission Date: 20250408
  Serious: Yes (Other)
  Sender: ABBVIE
  Company Number: US-ABBVIE-6071875

PATIENT
  Sex: Male

DRUGS (1)
  1. SAPHRIS [Suspect]
     Active Substance: ASENAPINE MALEATE
     Indication: Product used for unknown indication
     Route: 060

REACTIONS (3)
  - Amyotrophic lateral sclerosis [Unknown]
  - Choking [Unknown]
  - Dementia [Unknown]
